FAERS Safety Report 7297323-8 (Version None)
Quarter: 2011Q1

REPORT INFORMATION
  Report Type: 
  Country: None (occurrence: None)
  Receive Date: 20110207
  Receipt Date: 20110126
  Transmission Date: 20110831
  Serious: Yes (Other)
  Sender: FDA-Public Use
  Company Number: A0910785A

PATIENT
  Sex: Female

DRUGS (1)
  1. BENZOYL PEROXIDE + SALICYLIC ACID (BENZOYL PEROXIDE + SALICY) (FORMULA [Suspect]
     Indication: PRODUCT USED FOR UNKNOWN INDICATION
     Dosage: TOPICAL
     Route: 061
     Dates: start: 20110121, end: 20110121

REACTIONS (1)
  - PSORIASIS [None]
